FAERS Safety Report 7026572-9 (Version None)
Quarter: 2010Q4

REPORT INFORMATION
  Report Type: 
  Country: None (occurrence: None)
  Receive Date: 20101004
  Receipt Date: 20100923
  Transmission Date: 20110411
  Serious: Yes (Other)
  Sender: FDA-Public Use
  Company Number: FR-ASTRAZENECA-2010SE45000

PATIENT
  Age: 16970 Day
  Sex: Male

DRUGS (10)
  1. DIPRIVAN [Suspect]
     Indication: SEDATION
     Dosage: 4 MG/KG/H
     Route: 042
     Dates: start: 20080407, end: 20080413
  2. ULTIVA [Suspect]
     Indication: ANALGESIC THERAPY
     Route: 042
     Dates: start: 20080407, end: 20080413
  3. PIPERACILLIN AND TAZOBACTAM [Concomitant]
     Dates: end: 20080417
  4. HEMISUCCINATE OF HYDROCORTISONE [Concomitant]
     Dates: start: 20080407, end: 20080503
  5. NOREPINEPHRINE BITARTRATE [Concomitant]
     Dates: start: 20080407, end: 20080420
  6. LASIX [Concomitant]
     Dates: start: 20080410
  7. MOPRAL [Concomitant]
     Dates: start: 20080408, end: 20080414
  8. BUMEX [Concomitant]
     Dates: start: 20080412
  9. ORGARAN [Concomitant]
     Dates: start: 20080411, end: 20080412
  10. HEPARIN [Concomitant]
     Dates: start: 20080412, end: 20080413

REACTIONS (1)
  - PROPOFOL INFUSION SYNDROME [None]
